FAERS Safety Report 23306509 (Version 1)
Quarter: 2023Q4

REPORT INFORMATION
  Report Type: Spontaneous
  Country: US (occurrence: US)
  Receive Date: 20231218
  Receipt Date: 20231218
  Transmission Date: 20240110
  Serious: Yes (Hospitalization, Other)
  Sender: FDA-Public Use
  Company Number: US-JNJFOC-20231226228

PATIENT
  Age: 58 Year
  Sex: Male

DRUGS (37)
  1. OPSUMIT [Suspect]
     Active Substance: MACITENTAN
     Indication: Product used for unknown indication
     Route: 048
  2. TYVASO [Suspect]
     Active Substance: TREPROSTINIL
     Indication: Pulmonary arterial hypertension
     Dosage: CONCENTRATION OF 0.6 MG/ML
     Route: 055
     Dates: start: 20230412
  3. TADALAFIL [Suspect]
     Active Substance: TADALAFIL
     Indication: Product used for unknown indication
     Route: 065
  4. COLCHICINE [Concomitant]
     Active Substance: COLCHICINE
  5. ESOMEPRAZOLE [Concomitant]
     Active Substance: ESOMEPRAZOLE
  6. FUROSEMIDE [Concomitant]
     Active Substance: FUROSEMIDE
  7. MAGNESIUM [Concomitant]
     Active Substance: MAGNESIUM
  8. FLUTICASONE [Concomitant]
     Active Substance: FLUTICASONE
  9. LEVOCETIRIZINE [Concomitant]
     Active Substance: LEVOCETIRIZINE
  10. AUGMENTIN [Concomitant]
     Active Substance: AMOXICILLIN\CLAVULANATE POTASSIUM
  11. POTASSIUM [Concomitant]
     Active Substance: POTASSIUM
  12. TRELEGY ELLIPTA [Concomitant]
     Active Substance: FLUTICASONE FUROATE\UMECLIDINIUM BROMIDE\VILANTEROL TRIFENATATE
  13. OXYGEN [Concomitant]
     Active Substance: OXYGEN
  14. PRAVASTATIN SODIUM [Concomitant]
     Active Substance: PRAVASTATIN SODIUM
  15. AZELASTINE [Concomitant]
     Active Substance: AZELASTINE\AZELASTINE HYDROCHLORIDE
  16. ZINC [Concomitant]
     Active Substance: PYRITHIONE ZINC\ZINC\ZINC CHLORIDE
  17. VITAMINS [Concomitant]
     Active Substance: VITAMINS
  18. DICYCLOMINE [Concomitant]
     Active Substance: DICYCLOMINE HYDROCHLORIDE
  19. LACTASE [Concomitant]
     Active Substance: LACTASE
  20. SODIUM CHLORIDE [Concomitant]
     Active Substance: SODIUM CHLORIDE
  21. COD LIVER OIL [Concomitant]
     Active Substance: COD LIVER OIL
  22. JANUMET [Concomitant]
     Active Substance: METFORMIN HYDROCHLORIDE\SITAGLIPTIN PHOSPHATE
  23. VITAMIN C [Concomitant]
     Active Substance: ASCORBIC ACID
  24. VITAMIN D3 [Concomitant]
     Active Substance: CHOLECALCIFEROL
  25. ASPIRIN [Concomitant]
     Active Substance: ASPIRIN
     Dosage: LOW DOSE
  26. MONTELUKAST SODIUM [Concomitant]
     Active Substance: MONTELUKAST SODIUM
  27. PROMETHAZINE DM [Concomitant]
     Active Substance: DEXTROMETHORPHAN HYDROBROMIDE\PROMETHAZINE HYDROCHLORIDE
  28. VALIUM [Concomitant]
     Active Substance: DIAZEPAM
  29. METOLAZONE [Concomitant]
     Active Substance: METOLAZONE
  30. PREDNISONE [Concomitant]
     Active Substance: PREDNISONE
  31. MUCINEX [Concomitant]
     Active Substance: GUAIFENESIN
  32. ALGINIC ACID\ALUMINUM HYDROXIDE\MAGNESIUM TRISILICATE [Concomitant]
     Active Substance: ALGINIC ACID\ALUMINUM HYDROXIDE\MAGNESIUM TRISILICATE
  33. FINASTERIDE [Concomitant]
     Active Substance: FINASTERIDE
  34. SODIUM CHLORIDE [Concomitant]
     Active Substance: SODIUM CHLORIDE
  35. GAS-X [Concomitant]
     Active Substance: DIMETHICONE
  36. NYSTATIN [Concomitant]
     Active Substance: NYSTATIN
  37. SUCRALFATE [Concomitant]
     Active Substance: SUCRALFATE

REACTIONS (4)
  - Pneumonia [Unknown]
  - Hypotension [Unknown]
  - Infection [Unknown]
  - Pneumonitis [Unknown]

NARRATIVE: CASE EVENT DATE: 20230918
